FAERS Safety Report 10363560 (Version 2)
Quarter: 2014Q3

REPORT INFORMATION
  Report Type: Spontaneous
  Country: BR (occurrence: BR)
  Receive Date: 20140805
  Receipt Date: 20140819
  Transmission Date: 20150326
  Serious: Yes (Other)
  Sender: FDA-Public Use
  Company Number: PHHY2014BR095887

PATIENT
  Age: 75 Year
  Sex: Female
  Weight: 50 kg

DRUGS (6)
  1. QUEROPAX [Concomitant]
     Active Substance: QUETIAPINE FUMARATE
     Indication: SLEEP DISORDER
     Dosage: 1 DF, DAILY
     Route: 048
  2. SIFROL [Concomitant]
     Active Substance: PRAMIPEXOLE
     Indication: PARKINSON^S DISEASE
     Dosage: 3 DF, DAILY
     Route: 048
  3. SYNTHROID [Concomitant]
     Active Substance: LEVOTHYROXINE SODIUM
     Indication: HYPOTHYROIDISM
     Dosage: 1 DF, DAILY
     Route: 048
  4. ADDERA D3 [Concomitant]
     Active Substance: CHOLECALCIFEROL
     Indication: VITAMIN D ABNORMAL
     Dosage: 1 DF, QW3 (EACH MONDAY, WEDNESDAY AND FRIDAY)
     Route: 048
  5. MANTIDAN [Concomitant]
     Active Substance: AMANTADINE HYDROCHLORIDE
     Indication: PARKINSON^S DISEASE
     Dosage: 2 DF, DAILY
     Route: 048
  6. STALEVO [Suspect]
     Active Substance: CARBIDOPA\ENTACAPONE\LEVODOPA
     Indication: PARKINSON^S DISEASE
     Dosage: 650 MG, DAILY (2 TABLETS OF 100 MG AND THREE TABLETS OF 150 MG)
     Route: 048

REACTIONS (5)
  - Parkinson^s disease [Unknown]
  - Movement disorder [Recovering/Resolving]
  - Pain [Recovered/Resolved]
  - Osteopenia [Unknown]
  - Sciatica [Recovered/Resolved]

NARRATIVE: CASE EVENT DATE: 201401
